FAERS Safety Report 6044769-1 (Version None)
Quarter: 2009Q1

REPORT INFORMATION
  Report Type: 
  Country: None (occurrence: None)
  Receive Date: 20090120
  Receipt Date: 20090115
  Transmission Date: 20090719
  Serious: Yes (Death, Hospitalization)
  Sender: FDA-Public Use
  Company Number: FR-B.I. PHARMACEUTICALS,INC./RIDGEFIELD-2009-FF-00018FF

PATIENT
  Sex: Male

DRUGS (4)
  1. PERSANTINE [Suspect]
     Dosage: 75MG
     Route: 048
  2. PREVISCAN [Concomitant]
     Dosage: 15MG
     Route: 048
  3. INSULATARD [Concomitant]
  4. ACEBUTOLOL [Concomitant]

REACTIONS (1)
  - CEREBRAL HAEMATOMA [None]
